FAERS Safety Report 5120344-8 (Version None)
Quarter: 2006Q4

REPORT INFORMATION
  Report Type: 
  Country: None (occurrence: None)
  Receive Date: 20061004
  Receipt Date: 20060927
  Transmission Date: 20070319
  Serious: Yes (Hospitalization)
  Sender: FDA-Public Use
  Company Number: US-AVENTIS-200618159US

PATIENT
  Sex: Female

DRUGS (1)
  1. APIDRA [Suspect]
     Dosage: DOSE: UNK

REACTIONS (2)
  - HOSPITALISATION [None]
  - PHARMACEUTICAL PRODUCT COMPLAINT [None]
